FAERS Safety Report 9539311 (Version 1)
Quarter: 2013Q3

REPORT INFORMATION
  Report Type: Spontaneous
  Country: IT (occurrence: None)
  Receive Date: 20130917
  Receipt Date: 20130917
  Transmission Date: 20140515
  Serious: Yes (Hospitalization)
  Sender: FDA-Public Use
  Company Number: 2013AP007996

PATIENT
  Age: 40 Year
  Sex: Female

DRUGS (4)
  1. VENLAFAXINE (VENLAFAXINE) [Suspect]
     Dates: start: 20130715, end: 20130715
  2. ALPRAZOLAM [Suspect]
     Dates: start: 20130715, end: 20130715
  3. QUETIAPINE FUMARATE [Suspect]
     Dates: start: 20130715, end: 20130715
  4. DEPAKIN CHRONO [Concomitant]

REACTIONS (3)
  - Drug abuse [None]
  - Sopor [None]
  - Intentional self-injury [None]
